FAERS Safety Report 10201572 (Version 1)
Quarter: 2014Q2

REPORT INFORMATION
  Report Type: Spontaneous
  Country: US (occurrence: US)
  Receive Date: 20140528
  Receipt Date: 20140528
  Transmission Date: 20141212
  Serious: No
  Sender: FDA-Public Use
  Company Number: US-BAYER-2014-079155

PATIENT
  Sex: Female

DRUGS (3)
  1. ALEVE CAPLET [Suspect]
     Indication: RHEUMATOID ARTHRITIS
     Dosage: 1-2 DF, BID
     Route: 048
  2. ULTRAM [Concomitant]
     Indication: PAIN
  3. IMURAN [Concomitant]
     Indication: RHEUMATOID ARTHRITIS

REACTIONS (2)
  - Contusion [Unknown]
  - Extra dose administered [None]
